FAERS Safety Report 4795813-0 (Version None)
Quarter: 2005Q3

REPORT INFORMATION
  Report Type: 
  Country: None (occurrence: None)
  Receive Date: 20050916
  Receipt Date: 20041122
  Transmission Date: 20060218
  Serious: Yes (Hospitalization)
  Sender: FDA-Public Use
  Company Number: US-JNJFOC-20040404194

PATIENT
  Age: 58 Year
  Sex: Female
  Weight: 46.7205 kg

DRUGS (9)
  1. TOPAMAX [Suspect]
     Indication: CONVULSION
     Dosage: 15 MG, 1 IN 1 DAY, ORAL; SEE IMAGE
     Route: 048
     Dates: start: 20020101, end: 20030211
  2. TOPAMAX [Suspect]
     Indication: CONVULSION
     Dosage: 15 MG, 1 IN 1 DAY, ORAL; SEE IMAGE
     Route: 048
     Dates: start: 20030211, end: 20040721
  3. TOPAMAX [Suspect]
     Indication: CONVULSION
     Dosage: 15 MG, 1 IN 1 DAY, ORAL; SEE IMAGE
     Route: 048
     Dates: start: 20020101, end: 20051215
  4. TOPAMAX [Suspect]
     Indication: CONVULSION
     Dosage: 15 MG, 1 IN 1 DAY, ORAL; SEE IMAGE
     Route: 048
     Dates: start: 20020828
  5. TOPAMAX [Suspect]
     Indication: CONVULSION
     Dosage: 15 MG, 1 IN 1 DAY, ORAL; SEE IMAGE
     Route: 048
     Dates: start: 20021010
  6. TOPAMAX [Suspect]
     Indication: CONVULSION
     Dosage: 15 MG, 1 IN 1 DAY, ORAL; SEE IMAGE
     Route: 048
     Dates: start: 20021215
  7. TOPAMAX [Suspect]
     Indication: CONVULSION
     Dosage: 15 MG, 1 IN 1 DAY, ORAL; SEE IMAGE
     Route: 048
     Dates: start: 20040101
  8. TOPAMAX [Suspect]
     Indication: CONVULSION
     Dosage: 15 MG, 1 IN 1 DAY, ORAL; SEE IMAGE
     Route: 048
     Dates: start: 20040721
  9. LEVOXYL [Suspect]
     Dosage: 50 UG, IN 1 DAY; TRIED TAKING 25 MCG AT NIGHT OR FIRST THING IN THE MORNING
     Dates: start: 20040201

REACTIONS (18)
  - ANOREXIA [None]
  - APATHY [None]
  - APHASIA [None]
  - ASTHENIA [None]
  - CONVULSION [None]
  - DEPRESSED MOOD [None]
  - DYSARTHRIA [None]
  - EMOTIONAL DISORDER [None]
  - FATIGUE [None]
  - GINGIVAL DISORDER [None]
  - HEADACHE [None]
  - HYPOTHYROIDISM [None]
  - MEMORY IMPAIRMENT [None]
  - PANIC ATTACK [None]
  - PARAESTHESIA [None]
  - SOMNOLENCE [None]
  - TINNITUS [None]
  - WEIGHT DECREASED [None]
